FAERS Safety Report 12939757 (Version 1)
Quarter: 2016Q4

REPORT INFORMATION
  Report Type: Spontaneous
  Country: ZA (occurrence: ZA)
  Receive Date: 20161115
  Receipt Date: 20161115
  Transmission Date: 20170207
  Serious: Yes (Other)
  Sender: FDA-Public Use
  Company Number: ZA-ROCHE-1853899

PATIENT
  Age: 51 Year
  Sex: Male
  Weight: 64.5 kg

DRUGS (2)
  1. MABTHERA [Suspect]
     Active Substance: RITUXIMAB
     Indication: PRODUCT USED FOR UNKNOWN INDICATION
     Route: 042
     Dates: start: 20161027
  2. PERFALGAN [Concomitant]
     Active Substance: ACETAMINOPHEN
     Dosage: 1000MG IVI IMMEDIATELY
     Route: 042
     Dates: start: 20161027

REACTIONS (5)
  - Bone pain [Recovered/Resolved]
  - Chills [Recovered/Resolved]
  - Hyperhidrosis [Recovered/Resolved]
  - Hypotension [Recovered/Resolved]
  - Dyspnoea [Recovered/Resolved]
